FAERS Safety Report 12877577 (Version 1)
Quarter: 2016Q4

REPORT INFORMATION
  Report Type: Spontaneous
  Country: EG (occurrence: EG)
  Receive Date: 20161024
  Receipt Date: 20161024
  Transmission Date: 20170207
  Serious: Yes (Death)
  Sender: FDA-Public Use
  Company Number: PHHY2016EG143542

PATIENT
  Age: 3 Year
  Sex: Male

DRUGS (6)
  1. FLUZAN [Concomitant]
     Indication: TONSILLECTOMY
     Route: 065
     Dates: start: 20161012, end: 20161012
  2. INTRAVAL [Concomitant]
     Indication: TONSILLECTOMY
     Route: 065
     Dates: start: 20161012, end: 20161012
  3. KAPRON [Concomitant]
     Indication: TONSILLECTOMY
     Route: 065
     Dates: start: 20161012, end: 20161012
  4. CEFTRIAXONE SODIUM SANDOZ [Suspect]
     Active Substance: CEFTRIAXONE SODIUM
     Indication: TONSILLECTOMY
     Dosage: 500 MG,
     Route: 042
     Dates: start: 20161012, end: 20161012
  5. FORTECORTIN [Concomitant]
     Active Substance: DEXAMETHASONE
     Indication: TONSILLECTOMY
     Route: 065
  6. ATRACURIUM [Concomitant]
     Active Substance: ATRACURIUM
     Indication: TONSILLECTOMY
     Route: 065
     Dates: start: 20161012, end: 20161012

REACTIONS (1)
  - Cardiac arrest [Fatal]

NARRATIVE: CASE EVENT DATE: 20161012
